FAERS Safety Report 11251643 (Version 1)
Quarter: 2015Q3

REPORT INFORMATION
  Report Type: Spontaneous
  Country: US (occurrence: US)
  Receive Date: 20150708
  Receipt Date: 20150708
  Transmission Date: 20151125
  Serious: Yes (Other)
  Sender: FDA-Public Use
  Company Number: US-ELI_LILLY_AND_COMPANY-US201204009731

PATIENT
  Sex: Female
  Weight: 81.63 kg

DRUGS (4)
  1. AVASTIN [Concomitant]
     Active Substance: BEVACIZUMAB
  2. GEMZAR [Suspect]
     Active Substance: GEMCITABINE HYDROCHLORIDE
     Indication: LEIOMYOSARCOMA
     Dosage: 1700 MG, WEEKLY X 3/CYCLE
     Route: 042
     Dates: start: 20120110, end: 20120221
  3. CISPLATIN. [Concomitant]
     Active Substance: CISPLATIN
  4. GEMZAR [Suspect]
     Active Substance: GEMCITABINE HYDROCHLORIDE
     Dosage: 1700 MG, WEEKLY X 3/CYCLE
     Route: 042
     Dates: start: 20120110, end: 20120214

REACTIONS (1)
  - Neoplasm progression [Unknown]
